FAERS Safety Report 7634409-X (Version None)
Quarter: 2011Q3

REPORT INFORMATION
  Report Type: 
  Country: None (occurrence: None)
  Receive Date: 20110725
  Receipt Date: 20110715
  Transmission Date: 20111222
  Serious: Yes (Other)
  Sender: FDA-Public Use
  Company Number: PHHY2010JP82793

PATIENT
  Age: 66 Year
  Sex: Male

DRUGS (7)
  1. CARBOPLATIN [Concomitant]
     Indication: NON-SMALL CELL LUNG CANCER
  2. DECADRON [Concomitant]
  3. ZOMETA [Suspect]
     Indication: NON-SMALL CELL LUNG CANCER
     Dosage: 4 MG, DAILY
     Route: 041
     Dates: start: 20100712, end: 20101119
  4. GRANISETRON [Concomitant]
  5. PACLITAXEL [Concomitant]
     Indication: NON-SMALL CELL LUNG CANCER
  6. FAMOTIDINE [Concomitant]
  7. AVASTIN [Suspect]
     Indication: NON-SMALL CELL LUNG CANCER
     Dosage: 5 MG/KG, UNK
     Route: 042
     Dates: start: 20100720, end: 20101119

REACTIONS (4)
  - PURULENT DISCHARGE [None]
  - GINGIVAL SWELLING [None]
  - PAIN IN JAW [None]
  - OSTEONECROSIS OF JAW [None]
